FAERS Safety Report 11745596 (Version 1)
Quarter: 2015Q4

REPORT INFORMATION
  Report Type: Spontaneous
  Country: US (occurrence: None)
  Receive Date: 20151116
  Receipt Date: 20151116
  Transmission Date: 20160304
  Serious: No
  Sender: FDA-Public Use
  Company Number: None

PATIENT
  Age: 54 Year
  Sex: Female
  Weight: 122.47 kg

DRUGS (11)
  1. LEVOTHYROXIN [Concomitant]
     Active Substance: LEVOTHYROXINE
  2. SLO-NIACIN [Concomitant]
     Active Substance: DIETARY SUPPLEMENT
  3. ASPIRIN. [Concomitant]
     Active Substance: ASPIRIN
  4. CRESTOR [Concomitant]
     Active Substance: ROSUVASTATIN CALCIUM
  5. FISH OIL [Concomitant]
     Active Substance: FISH OIL
  6. ZETIA [Concomitant]
     Active Substance: EZETIMIBE
  7. CALCIUM WITH VITAMIN D [Concomitant]
     Active Substance: CALCIUM\VITAMIN D
  8. METOPROLOL [Concomitant]
     Active Substance: METOPROLOL
  9. IUD MIRENA [Concomitant]
  10. LEXISCAN [Suspect]
     Active Substance: REGADENOSON
     Indication: CARDIAC IMAGING PROCEDURE
     Route: 042
     Dates: start: 20151113
  11. LISINOPRIL. [Concomitant]
     Active Substance: LISINOPRIL

REACTIONS (1)
  - Pain in extremity [None]

NARRATIVE: CASE EVENT DATE: 20151113
